FAERS Safety Report 7240357-X (Version None)
Quarter: 2011Q1

REPORT INFORMATION
  Report Type: 
  Country: None (occurrence: None)
  Receive Date: 20110118
  Receipt Date: 20110103
  Transmission Date: 20110831
  Serious: Yes (Hospitalization)
  Sender: FDA-Public Use
  Company Number: AMAG201000407

PATIENT
  Age: 84 Year
  Sex: Female
  Weight: 67.1 kg

DRUGS (7)
  1. FERAHEME [Suspect]
     Indication: IRON DEFICIENCY ANAEMIA
     Dosage: 510 MG, SINGLE, INTRAVENOUS
     Route: 042
     Dates: start: 20101110, end: 20101110
  2. FERAHEME [Suspect]
     Indication: NEPHROGENIC ANAEMIA
     Dosage: 510 MG, SINGLE, INTRAVENOUS
     Route: 042
     Dates: start: 20101110, end: 20101110
  3. PACERONE (AMIODRONE HYDROCHLORIDE) [Concomitant]
  4. ASPIRIN [Concomitant]
  5. LASIX [Concomitant]
  6. MELATONIN (MELATONIN) [Concomitant]
  7. NITROFURATION MONOHYDRATE/MACROCRYSTALS (NITROFURANTOIN) [Concomitant]

REACTIONS (9)
  - SYNCOPE [None]
  - HYPOVOLAEMIA [None]
  - ATRIAL FIBRILLATION [None]
  - SICK SINUS SYNDROME [None]
  - HYPOTENSION [None]
  - RENAL FAILURE ACUTE [None]
  - GASTROENTERITIS [None]
  - DEHYDRATION [None]
  - SEPSIS [None]
